FAERS Safety Report 5200884-3 (Version None)
Quarter: 2007Q1

REPORT INFORMATION
  Report Type: 
  Country: None (occurrence: None)
  Receive Date: 20070108
  Receipt Date: 20070102
  Transmission Date: 20070707
  Serious: Yes (Other)
  Sender: FDA-Public Use
  Company Number: US-AMGEN-STX202033

PATIENT
  Sex: Female

DRUGS (2)
  1. ENBREL [Suspect]
     Indication: PSORIASIS
     Route: 058
     Dates: start: 20061024
  2. SORIATANE [Concomitant]
     Indication: PSORIASIS
     Dates: start: 20040401

REACTIONS (5)
  - BLOOD PRESSURE INCREASED [None]
  - INFECTION [None]
  - PSORIASIS [None]
  - PUSTULAR PSORIASIS [None]
  - WHITE BLOOD CELL COUNT INCREASED [None]
